FAERS Safety Report 7952458-9 (Version None)
Quarter: 2011Q4

REPORT INFORMATION
  Report Type: 
  Country: None (occurrence: None)
  Receive Date: 20111201
  Receipt Date: 20111123
  Transmission Date: 20120403
  Serious: Yes (Hospitalization)
  Sender: FDA-Public Use
  Company Number: SE-BAXTER-2011BH035889

PATIENT
  Age: 15 Year
  Sex: Female

DRUGS (3)
  1. GAMMAGARD LIQUID [Suspect]
     Indication: PRODUCT USED FOR UNKNOWN INDICATION
     Route: 042
     Dates: start: 20110908, end: 20110910
  2. CYCLOPHOSPHAMIDE [Concomitant]
     Indication: ALLERGIC GRANULOMATOUS ANGIITIS
     Route: 065
  3. PREDNISOLONE [Concomitant]
     Indication: ALLERGIC GRANULOMATOUS ANGIITIS
     Route: 048

REACTIONS (4)
  - URTICARIA [None]
  - PAIN [None]
  - CHILLS [None]
  - ANXIETY [None]
